FAERS Safety Report 10796190 (Version 2)
Quarter: 2018Q1

REPORT INFORMATION
  Report Type: Report from Study
  Country: NO (occurrence: NO)
  Receive Date: 20150216
  Receipt Date: 20180215
  Transmission Date: 20180508
  Serious: Yes (Hospitalization)
  Sender: FDA-Public Use
  Company Number: NO-MERCK-1502NOR004565

PATIENT
  Age: 46 Year
  Sex: Male

DRUGS (8)
  1. DASATINIB. [Suspect]
     Active Substance: DASATINIB
     Indication: MYELOID LEUKAEMIA
     Dosage: 100 MG, UNK
     Dates: start: 201709, end: 20171215
  2. EPINEPHRINE. [Concomitant]
     Active Substance: EPINEPHRINE
     Dosage: 0.3 MG, BID
     Route: 030
  3. EPIDUO [Concomitant]
     Active Substance: ADAPALENE\BENZOYL PEROXIDE
     Indication: ACNE
  4. COSYLAN (DEXTROMETHORPHAN HYDROBROMIDE) [Concomitant]
     Dosage: UNK
     Route: 048
     Dates: start: 201709
  5. PEGINTERFERON ALFA-2B [Suspect]
     Active Substance: PEGINTERFERON ALFA-2B
     Indication: MYELOID LEUKAEMIA
     Dosage: 15 MICROGRAM, QW
  6. NAPREN [Concomitant]
     Indication: ARTHRITIS
     Dosage: UNK, PRN
  7. SOLU-CORTEF [Concomitant]
     Active Substance: HYDROCORTISONE SODIUM SUCCINATE
     Dosage: 250 MG, BID
  8. DEXCHLORPHENIRAMINE MALEATE. [Concomitant]
     Active Substance: DEXCHLORPHENIRAMINE MALEATE
     Dosage: 5 MG, BID
     Route: 030

REACTIONS (2)
  - Pleural effusion [Recovered/Resolved]
  - Anaphylactic reaction [Recovered/Resolved]

NARRATIVE: CASE EVENT DATE: 20141212
